FAERS Safety Report 6081545-8 (Version None)
Quarter: 2009Q1

REPORT INFORMATION
  Report Type: 
  Country: None (occurrence: None)
  Receive Date: 20090218
  Receipt Date: 20090210
  Transmission Date: 20090719
  Serious: Yes (Death, Hospitalization)
  Sender: FDA-Public Use
  Company Number: US-BAYER-UA-2007-041220

PATIENT
  Age: 68 Year
  Sex: Male

DRUGS (20)
  1. MABCAMPATH [Suspect]
     Indication: B-CELL SMALL LYMPHOCYTIC LYMPHOMA
     Dosage: UNIT DOSE: 30 MG
     Route: 042
     Dates: start: 20070504, end: 20071106
  2. FLUDARABINE PHOSPHATE [Suspect]
     Indication: B-CELL SMALL LYMPHOCYTIC LYMPHOMA
     Dosage: UNIT DOSE: 50 MG
     Route: 042
     Dates: start: 20070507, end: 20071106
  3. BISEPTOL [Concomitant]
     Indication: INFECTION PROPHYLAXIS
     Route: 048
     Dates: start: 20070504
  4. ACYCLOVIR [Concomitant]
     Indication: PROPHYLAXIS
     Route: 048
     Dates: start: 20070504
  5. OMEPRAZOLE [Concomitant]
     Indication: EROSIVE DUODENITIS
     Route: 048
     Dates: start: 20071108
  6. HILAC-FORTE [Concomitant]
     Indication: DIARRHOEA
     Route: 048
     Dates: start: 20071124, end: 20071128
  7. SORBIFER DURULES [Concomitant]
     Indication: ANAEMIA
     Route: 048
     Dates: start: 20071124, end: 20071128
  8. EPREX [Concomitant]
     Indication: ANAEMIA
     Route: 058
     Dates: start: 20071124, end: 20071128
  9. LOPERAMIDE HCL [Concomitant]
     Indication: DIARRHOEA
     Route: 048
     Dates: start: 20071124
  10. PARACETAMOL [Concomitant]
     Dates: start: 20071105, end: 20071106
  11. TAVEGIL [Concomitant]
     Dates: start: 20071105, end: 20071106
  12. DEXAMETHASONE [Concomitant]
     Indication: PREMEDICATION
     Dates: start: 20071105, end: 20071106
  13. AMOXICILLIN [Concomitant]
     Dates: start: 20071108, end: 20071114
  14. CLARITHROMYCIN [Concomitant]
     Indication: EROSIVE DUODENITIS
     Dates: start: 20071108, end: 20071114
  15. EPOETIN ALFA [Concomitant]
     Dates: start: 20071120, end: 20071123
  16. NIFUROXAZIDE [Concomitant]
     Indication: DIARRHOEA
     Dates: start: 20071121, end: 20071123
  17. DOPERAMIDE [Concomitant]
     Dates: start: 20071124, end: 20071128
  18. AMBROXOL [Concomitant]
     Indication: BRONCHITIS CHRONIC
     Dates: start: 20071023, end: 20071028
  19. LINCOMYCIN HCL [Concomitant]
     Indication: SINUSITIS
     Dates: start: 20071030, end: 20071107
  20. AMOXICILLIN AND CLAVULANATE POTASSIUM [Concomitant]
     Indication: SINUSITIS
     Dates: start: 20071102, end: 20071108

REACTIONS (3)
  - CARDIOPULMONARY FAILURE [None]
  - HEPATITIS C [None]
  - SINUSITIS [None]
